FAERS Safety Report 25634143 (Version 1)
Quarter: 2025Q3

REPORT INFORMATION
  Report Type: Spontaneous
  Country: US (occurrence: None)
  Receive Date: 20250801
  Receipt Date: 20250801
  Transmission Date: 20251020
  Serious: Yes (Death)
  Sender: FDA-CTU
  Company Number: None

PATIENT
  Age: 56 Year
  Sex: Female
  Weight: 56.3 kg

DRUGS (6)
  1. ENHERTU [Suspect]
     Active Substance: FAM-TRASTUZUMAB DERUXTECAN-NXKI
     Indication: HER2 positive breast cancer
     Dates: start: 20241114, end: 20250529
  2. DOCETAXEL [Suspect]
     Active Substance: DOCETAXEL
  3. CARBOPLATIN [Suspect]
     Active Substance: CARBOPLATIN
  4. HERCEPTIN [Suspect]
     Active Substance: TRASTUZUMAB
  5. PERJETA [Suspect]
     Active Substance: PERTUZUMAB
  6. PREDNISONE [Suspect]
     Active Substance: PREDNISONE

REACTIONS (6)
  - Respiratory failure [None]
  - Pneumothorax [None]
  - Post procedural complication [None]
  - Lung consolidation [None]
  - Lymphadenopathy mediastinal [None]
  - Malignant neoplasm progression [None]

NARRATIVE: CASE EVENT DATE: 20250731
